FAERS Safety Report 14842459 (Version 1)
Quarter: 2018Q2

REPORT INFORMATION
  Report Type: Spontaneous
  Country: CA (occurrence: CA)
  Receive Date: 20180503
  Receipt Date: 20180503
  Transmission Date: 20180711
  Serious: Yes (Life-Threatening, Hospitalization)
  Sender: FDA-Public Use
  Company Number: CA-TEVA-2018-CA-888417

PATIENT
  Age: 39 Year
  Sex: Female
  Weight: 58.11 kg

DRUGS (6)
  1. SALBUTAMOL HFA [Concomitant]
     Active Substance: ALBUTEROL
     Dosage: METERED-DOSE (AEROSOL)
  2. TRI-CYCLEN TABLETS -28-DAY [Concomitant]
  3. SPIRONOLACTONE. [Suspect]
     Active Substance: SPIRONOLACTONE
     Indication: ACNE
  4. SPIRONOLACTONE. [Suspect]
     Active Substance: SPIRONOLACTONE
     Indication: MENSTRUATION IRREGULAR
     Dosage: 50 MILLIGRAM DAILY;
     Route: 048
  5. FUROSEMIDE. [Concomitant]
     Active Substance: FUROSEMIDE
  6. SPIRONOLACTONE. [Suspect]
     Active Substance: SPIRONOLACTONE
     Indication: HORMONE LEVEL ABNORMAL

REACTIONS (5)
  - Agitation [Recovered/Resolved]
  - Anger [Recovered/Resolved]
  - Depression [Recovered/Resolved]
  - Suicide attempt [Recovered/Resolved]
  - Suicidal ideation [Recovered/Resolved]
